FAERS Safety Report 18553987 (Version 1)
Quarter: 2020Q4

REPORT INFORMATION
  Report Type: Spontaneous
  Country: US (occurrence: US)
  Receive Date: 20201127
  Receipt Date: 20201127
  Transmission Date: 20210114
  Serious: Yes (Hospitalization, Other)
  Sender: FDA-Public Use
  Company Number: US-APOTEX-2020AP022464

PATIENT
  Age: 75 Year
  Sex: Male

DRUGS (1)
  1. DASATINIB. [Suspect]
     Active Substance: DASATINIB
     Indication: CHRONIC MYELOID LEUKAEMIA
     Dosage: 140 MILLIGRAM, QD
     Route: 065

REACTIONS (3)
  - Pleural effusion [Recovering/Resolving]
  - Pneumonitis [Recovering/Resolving]
  - Pneumocystis jirovecii pneumonia [Recovering/Resolving]
